FAERS Safety Report 10273237 (Version 2)
Quarter: 2014Q3

REPORT INFORMATION
  Report Type: Spontaneous
  Country: DK (occurrence: None)
  Receive Date: 20140630
  Receipt Date: 20140725
  Transmission Date: 20150326
  Serious: Yes (Death, Other)
  Sender: FDA-Public Use
  Company Number: AUR-APL-2014-06901

PATIENT
  Age: 62 Year
  Sex: Female

DRUGS (2)
  1. CASPOFUNGIN [Suspect]
     Active Substance: CASPOFUNGIN
     Indication: ANTIFUNGAL PROPHYLAXIS
     Dosage: 50 MG/DAY AFTER LOADING DOSE OF 70 MG
  2. FLUCONAZOLE 200MG (FLUCONAZOLE) UNKNOWN, 200MG [Suspect]
     Active Substance: FLUCONAZOLE
     Indication: PRODUCT USED FOR UNKNOWN INDICATION
     Dosage: ONCE A DAY
     Route: 048

REACTIONS (4)
  - Candida infection [None]
  - Pathogen resistance [None]
  - Cerebral infarction [None]
  - Drug ineffective [None]
